FAERS Safety Report 8359097-9 (Version None)
Quarter: 2012Q2

REPORT INFORMATION
  Report Type: 
  Country: None (occurrence: None)
  Receive Date: 20120515
  Receipt Date: 20120504
  Transmission Date: 20120825
  Serious: No
  Sender: FDA-Public Use
  Company Number: US-BIOGENIDEC-2012BI015664

PATIENT
  Sex: Female

DRUGS (1)
  1. AVONEX [Suspect]
     Indication: MULTIPLE SCLEROSIS
     Route: 030
     Dates: start: 20050506

REACTIONS (9)
  - BACK PAIN [None]
  - FATIGUE [None]
  - MYALGIA [None]
  - FIBROMYALGIA [None]
  - SENSATION OF HEAVINESS [None]
  - RASH ERYTHEMATOUS [None]
  - URINARY TRACT INFECTION BACTERIAL [None]
  - AUTOANTIBODY POSITIVE [None]
  - ARTHRALGIA [None]
